FAERS Safety Report 18877773 (Version 1)
Quarter: 2021Q1

REPORT INFORMATION
  Report Type: Spontaneous
  Country: US (occurrence: US)
  Receive Date: 20210211
  Receipt Date: 20210211
  Transmission Date: 20210420
  Serious: Yes (Other)
  Sender: FDA-Public Use
  Company Number: US-SCIEGEN-2021SCILIT00094

PATIENT
  Age: 87 Year
  Sex: Male

DRUGS (1)
  1. METFORMIN HYDROCHLORIDETABLETS [Suspect]
     Active Substance: METFORMIN HYDROCHLORIDE
     Indication: DIABETES MELLITUS
     Route: 065

REACTIONS (5)
  - Confusional state [Unknown]
  - Lactic acidosis [Recovering/Resolving]
  - Atrial fibrillation [Unknown]
  - Acute kidney injury [Unknown]
  - Toxicity to various agents [Unknown]
